FAERS Safety Report 8098532 (Version 2)
Quarter: 2013Q4

REPORT INFORMATION
  Report Type: Spontaneous
  Country: US (occurrence: None)
  Receive Date: 20100909
  Receipt Date: 20131119
  Transmission Date: 20140711
  Serious: Yes (Other)
  Sender: FDA-Public Use
  Company Number: 20100407

PATIENT
  Age: 73 Year
  Sex: Female

DRUGS (2)
  1. METHYLENE BLUE [Suspect]
     Indication: PARATHYROID DISORDER
     Dosage: 5 MG/KG IN 500 ML NSS, INTRAVENOUS
     Route: 042
  2. ESCITALOPRAM OXALATE [Concomitant]
     Indication: PRODUCT USED FOR UNKNOWN INDICATION

REACTIONS (3)
  - Encephalopathy [None]
  - Post procedural complication [None]
  - Lethargy [None]
